FAERS Safety Report 5402754-4 (Version None)
Quarter: 2007Q3

REPORT INFORMATION
  Report Type: 
  Country: None (occurrence: None)
  Receive Date: 20070801
  Receipt Date: 20070726
  Transmission Date: 20080115
  Serious: Yes (Other)
  Sender: FDA-Public Use
  Company Number: GB-AVENTIS-200716873GDDC

PATIENT
  Age: 89 Year
  Sex: Female
  Weight: 48 kg

DRUGS (6)
  1. AMARYL [Suspect]
  2. FUROSEMIDE [Concomitant]
     Dosage: DOSE: UNK
  3. ASPIRIN [Concomitant]
  4. CHLORPHENIRAMINE MALEATE [Concomitant]
  5. FLUOXETINE [Concomitant]
  6. LACTULOSE [Concomitant]

REACTIONS (2)
  - HYPOGLYCAEMIC COMA [None]
  - MEDICATION ERROR [None]
